FAERS Safety Report 5203426-1 (Version None)
Quarter: 2007Q1

REPORT INFORMATION
  Report Type: 
  Country: None (occurrence: None)
  Receive Date: 20070108
  Receipt Date: 20061218
  Transmission Date: 20070707
  Serious: Yes (Hospitalization)
  Sender: FDA-Public Use
  Company Number: 6028303F

PATIENT
  Age: 68 Year
  Sex: Male

DRUGS (4)
  1. NIASPAN [Suspect]
     Dosage: 500 MG QD PO
     Route: 048
     Dates: start: 20061206
  2. ASPIRIN [Concomitant]
  3. LESCOL [Concomitant]
  4. MAGNESIUM (MAGNESIUM SULFATE) [Concomitant]

REACTIONS (2)
  - INJURY [None]
  - ROAD TRAFFIC ACCIDENT [None]
